FAERS Safety Report 25216121 (Version 1)
Quarter: 2025Q2

REPORT INFORMATION
  Report Type: Spontaneous
  Country: CN (occurrence: CN)
  Receive Date: 20250418
  Receipt Date: 20250418
  Transmission Date: 20250717
  Serious: Yes (Other)
  Sender: ROCHE
  Company Number: CN-ROCHE-10000255729

PATIENT
  Age: 68 Year
  Sex: Male

DRUGS (2)
  1. OBINUTUZUMAB [Suspect]
     Active Substance: OBINUTUZUMAB
     Indication: Mantle cell lymphoma
     Route: 042
     Dates: start: 20250324, end: 20250324
  2. METHYLPREDNISOLONE SODIUM SUCCINATE [Suspect]
     Active Substance: METHYLPREDNISOLONE SODIUM SUCCINATE
     Indication: Mantle cell lymphoma
     Route: 042
     Dates: start: 20250324, end: 20250324

REACTIONS (7)
  - Nausea [Recovering/Resolving]
  - Oxygen saturation decreased [Recovering/Resolving]
  - Pyrexia [Recovering/Resolving]
  - Blood pressure increased [Recovering/Resolving]
  - Temperature intolerance [Recovering/Resolving]
  - Hyperhidrosis [Recovering/Resolving]
  - Off label use [Unknown]

NARRATIVE: CASE EVENT DATE: 20250324
